FAERS Safety Report 7590665-8 (Version None)
Quarter: 2011Q3

REPORT INFORMATION
  Report Type: 
  Country: None (occurrence: None)
  Receive Date: 20110705
  Receipt Date: 20110627
  Transmission Date: 20111222
  Serious: Yes (Other)
  Sender: FDA-Public Use
  Company Number: PHHY2011IN57278

PATIENT
  Age: 22 Year
  Sex: Female

DRUGS (3)
  1. VANCOMYCIN [Suspect]
     Dosage: 1 G, Q12H
  2. PHENYTOIN [Interacting]
     Dosage: 100 MG, Q8H
  3. DEXAMETHASONE [Interacting]
     Dosage: 2 G, Q8H

REACTIONS (5)
  - ORAL DISORDER [None]
  - ERYTHEMA [None]
  - STEVENS-JOHNSON SYNDROME [None]
  - RASH [None]
  - RED MAN SYNDROME [None]
